FAERS Safety Report 4434011-7 (Version None)
Quarter: 2004Q3

REPORT INFORMATION
  Report Type: 
  Country: None (occurrence: None)
  Receive Date: 20040825
  Receipt Date: 20040810
  Transmission Date: 20050211
  Serious: Yes (Other)
  Sender: FDA-Public Use
  Company Number: 2004-0007357

PATIENT
  Sex: Male

DRUGS (4)
  1. EMTRIVA [Suspect]
  2. VIREAD [Suspect]
  3. NORVIR [Concomitant]
  4. ATAZANAVIR (ATAZANAVIR) [Concomitant]

REACTIONS (1)
  - RENAL FAILURE ACUTE [None]
